FAERS Safety Report 9642413 (Version 1)
Quarter: 2013Q4

REPORT INFORMATION
  Report Type: Spontaneous
  Country: GB (occurrence: GB)
  Receive Date: 20131024
  Receipt Date: 20131024
  Transmission Date: 20140711
  Serious: Yes (Life-Threatening, Hospitalization, Disabling, Other)
  Sender: FDA-Public Use
  Company Number: GB-AMGEN-GBRSP2013074990

PATIENT
  Age: 66 Year
  Sex: 0

DRUGS (10)
  1. ENBREL [Suspect]
     Indication: RHEUMATOID ARTHRITIS
     Dosage: 50 MG, WEEKLY
     Route: 058
     Dates: start: 20120229, end: 201305
  2. CO-CODAMOL [Concomitant]
     Dosage: 30/500
  3. CYCLIZINE [Concomitant]
     Dosage: UNK
  4. CLOPIDOGREL [Concomitant]
     Dosage: UNK
  5. TRAMADOL HYDROCHLORIDE [Concomitant]
     Dosage: UNK
  6. PIROXICAM [Concomitant]
     Dosage: UNK
  7. LERCANIDIPINE [Concomitant]
     Dosage: UNK
  8. LANSOPRAZOLE [Concomitant]
     Dosage: UNK
  9. LEVOTHYROXINE [Concomitant]
     Dosage: UNK
  10. METHOTREXATE [Concomitant]
     Dosage: UNK

REACTIONS (6)
  - Cerebrovascular accident [Unknown]
  - Bronchial carcinoma [Unknown]
  - Metastases to liver [Unknown]
  - Metastases to central nervous system [Unknown]
  - Metastases to bone [Unknown]
  - Metastases to lymph nodes [Unknown]
